FAERS Safety Report 9171057 (Version 1)
Quarter: 2013Q1

REPORT INFORMATION
  Report Type: Spontaneous
  Country: FR (occurrence: FR)
  Receive Date: 20130319
  Receipt Date: 20130319
  Transmission Date: 20140127
  Serious: Yes (Other)
  Sender: FDA-Public Use
  Company Number: PHHY2013FR026639

PATIENT
  Sex: Female

DRUGS (2)
  1. AFINITOR [Suspect]
     Indication: BREAST CANCER METASTATIC
  2. ZOMETA [Suspect]
     Route: 042

REACTIONS (4)
  - Haematotoxicity [Unknown]
  - Osteonecrosis of jaw [Unknown]
  - Stomatitis necrotising [Unknown]
  - Hypokalaemia [Unknown]
